FAERS Safety Report 26012313 (Version 1)
Quarter: 2025Q4

REPORT INFORMATION
  Report Type: Spontaneous
  Country: US (occurrence: US)
  Receive Date: 20251107
  Receipt Date: 20251107
  Transmission Date: 20260118
  Serious: Yes (Other)
  Sender: ABBVIE
  Company Number: US-ABBVIE-6533880

PATIENT
  Sex: Female

DRUGS (1)
  1. REFRESH RELIEVA [Suspect]
     Active Substance: CARBOXYMETHYLCELLULOSE SODIUM\GLYCERIN
     Indication: Eye disorder
     Dosage: PF
     Route: 047

REACTIONS (4)
  - Ovarian cancer stage IV [Unknown]
  - Device difficult to use [Not Recovered/Not Resolved]
  - Fatigue [Unknown]
  - Confusional state [Unknown]
